FAERS Safety Report 9361916 (Version 5)
Quarter: 2013Q4

REPORT INFORMATION
  Report Type: Spontaneous
  Country: US (occurrence: US)
  Receive Date: 20130621
  Receipt Date: 20131023
  Transmission Date: 20140711
  Serious: Yes (Hospitalization, Disabling, Other)
  Sender: FDA-Public Use
  Company Number: US-009507513-1306USA009017

PATIENT
  Sex: Female
  Weight: 68.93 kg

DRUGS (10)
  1. FOSAMAX [Suspect]
     Indication: OSTEOPENIA
     Dosage: 70 MG, UNK
     Route: 048
     Dates: start: 20040701, end: 20110401
  2. FOSAMAX [Suspect]
     Indication: PROPHYLAXIS
  3. ALENDRONATE SODIUM [Suspect]
     Dosage: 70 MG, UNK
     Route: 048
     Dates: start: 20110225
  4. HORMONES (UNSPECIFIED) [Concomitant]
     Dosage: UNK
     Dates: start: 200407, end: 201202
  5. SYNTHROID [Concomitant]
     Indication: HYPOTHYROIDISM
     Dosage: UNK
     Dates: start: 1996
  6. ACTONEL [Concomitant]
     Indication: OSTEOPENIA
     Dosage: 35 MG, UNK
     Dates: start: 20000101, end: 20040831
  7. ACTONEL [Concomitant]
     Indication: PROPHYLAXIS
  8. ARIMIDEX [Concomitant]
     Indication: BREAST CANCER
     Dosage: UNK
     Dates: start: 2004, end: 2012
  9. ANTINEOPLASTIC (UNSPECIFIED) [Concomitant]
     Indication: BREAST CANCER
     Dosage: UNK
     Dates: start: 200403, end: 200408
  10. CALCIUM (UNSPECIFIED) [Concomitant]
     Indication: OSTEOPENIA

REACTIONS (47)
  - Intramedullary rod insertion [Unknown]
  - Carpal tunnel syndrome [Unknown]
  - Neuropathy peripheral [Not Recovered/Not Resolved]
  - Cognitive disorder [Not Recovered/Not Resolved]
  - Metastatic neoplasm [Unknown]
  - Pathological fracture [Unknown]
  - Femur fracture [Recovering/Resolving]
  - Low turnover osteopathy [Unknown]
  - Diabetes mellitus [Unknown]
  - Carpal tunnel decompression [Unknown]
  - Neutropenia [Unknown]
  - Herpes zoster [Unknown]
  - Hepatic steatosis [Unknown]
  - Depression [Unknown]
  - Anxiety [Unknown]
  - Medical device pain [Unknown]
  - Rib fracture [Not Recovered/Not Resolved]
  - Cushing^s syndrome [Not Recovered/Not Resolved]
  - Rib fracture [Unknown]
  - Osteoarthritis [Unknown]
  - Osteoarthritis [Unknown]
  - Gait disturbance [Unknown]
  - Contusion [Unknown]
  - Contusion [Unknown]
  - Thyroid atrophy [Unknown]
  - Atelectasis [Unknown]
  - Pulmonary fibrosis [Unknown]
  - Retroperitoneal hernia [Unknown]
  - Arthropathy [Unknown]
  - Intervertebral disc degeneration [Unknown]
  - Scoliosis [Unknown]
  - Intervertebral disc protrusion [Unknown]
  - Anaemia [Unknown]
  - Asthma [Unknown]
  - Inguinal hernia repair [Unknown]
  - Osteoporosis [Unknown]
  - Fall [Unknown]
  - Hypertension [Unknown]
  - Blood cholesterol increased [Unknown]
  - Major depression [Unknown]
  - Blood triglycerides increased [Unknown]
  - Fatigue [Unknown]
  - Anxiety [Unknown]
  - Insomnia [Unknown]
  - Adverse event [Unknown]
  - Pain in extremity [Unknown]
  - Gastrooesophageal reflux disease [Unknown]
